FAERS Safety Report 6029086-8 (Version None)
Quarter: 2008Q4

REPORT INFORMATION
  Report Type: 
  Country: None (occurrence: None)
  Receive Date: 20081231
  Receipt Date: 20081218
  Transmission Date: 20090506
  Serious: Yes (Other)
  Sender: FDA-Public Use
  Company Number: 2008S1022503

PATIENT
  Age: 50 Year
  Sex: Female

DRUGS (5)
  1. DOXCYCLINE (DOXCYCLINE) [Suspect]
     Indication: ACNE
     Dosage: 100 MG;DAILY;ORAL
     Route: 048
     Dates: start: 20051019, end: 20081101
  2. DOXCYCLINE (DOXCYCLINE) [Suspect]
     Indication: ROSACEA
     Dosage: 100 MG;DAILY;ORAL
     Route: 048
     Dates: start: 20051019, end: 20081101
  3. RANITIDINE [Suspect]
     Indication: DYSPEPSIA
     Dosage: 300 MG;DAILY;ORAL
     Route: 048
     Dates: start: 20080527, end: 20081101
  4. AMITRIPTYLINE HCL [Concomitant]
  5. LEVOTHYROXINE SODIUM [Concomitant]

REACTIONS (3)
  - ARTHRALGIA [None]
  - DYSPEPSIA [None]
  - HEADACHE [None]
